FAERS Safety Report 9189713 (Version 1)
Quarter: 2013Q1

REPORT INFORMATION
  Report Type: Spontaneous
  Country: PL (occurrence: PL)
  Receive Date: 20130326
  Receipt Date: 20130326
  Transmission Date: 20140127
  Serious: Yes (Other)
  Sender: FDA-Public Use
  Company Number: PL-JNJFOC-20130310460

PATIENT
  Age: 54 Year
  Sex: Male
  Weight: 95 kg

DRUGS (1)
  1. STELARA [Suspect]
     Indication: PSORIASIS
     Dosage: STARTED 1 YEAR AGO
     Route: 058

REACTIONS (1)
  - Anxiety disorder [Not Recovered/Not Resolved]
